FAERS Safety Report 24679275 (Version 1)
Quarter: 2024Q4

REPORT INFORMATION
  Report Type: Spontaneous
  Country: US (occurrence: US)
  Receive Date: 20241129
  Receipt Date: 20241129
  Transmission Date: 20250114
  Serious: Yes (Life-Threatening, Other)
  Sender: RANBAXY
  Company Number: US-SUN PHARMACEUTICAL INDUSTRIES LTD-2024R1-481699

PATIENT
  Age: 37 Year
  Sex: Female

DRUGS (5)
  1. LABETALOL [Suspect]
     Active Substance: LABETALOL
     Indication: Gestational hypertension
     Dosage: 20 MILLIGRAM
     Route: 042
  2. LABETALOL [Suspect]
     Active Substance: LABETALOL
     Dosage: 200 MILLIGRAM, BID
     Route: 048
  3. NIFEDIPINE [Suspect]
     Active Substance: NIFEDIPINE
     Indication: Gestational hypertension
     Dosage: 60 MILLIGRAM, BID
     Route: 048
  4. MAGNESIUM SULFATE [Suspect]
     Active Substance: MAGNESIUM SULFATE
     Indication: Product used for unknown indication
     Dosage: 6 GRAM
     Route: 040
  5. MAGNESIUM SULFATE [Suspect]
     Active Substance: MAGNESIUM SULFATE
     Dosage: 20 G/500ML AT 25 ML/HR FOR 2 DAYS
     Route: 040

REACTIONS (7)
  - Dyspnoea [Recovering/Resolving]
  - Oxygen saturation decreased [Recovering/Resolving]
  - Exposure during pregnancy [Unknown]
  - Premature delivery [Unknown]
  - Hypertension [Unknown]
  - Sepsis [Unknown]
  - Acute respiratory failure [Unknown]
